FAERS Safety Report 5163906-4 (Version None)
Quarter: 2006Q4

REPORT INFORMATION
  Report Type: 
  Country: None (occurrence: None)
  Receive Date: 20061204
  Receipt Date: 20060926
  Transmission Date: 20070319
  Serious: Yes (Hospitalization)
  Sender: FDA-Public Use
  Company Number: JP-ELI_LILLY_AND_COMPANY-JP200609007247

PATIENT
  Age: 55 Year
  Sex: Female
  Weight: 38.2 kg

DRUGS (7)
  1. OLANZAPINE [Suspect]
     Indication: SCHIZOPHRENIA, PARANOID TYPE
     Dosage: 2.5 MG, DAILY (1/D)
     Route: 048
     Dates: start: 20060714, end: 20060720
  2. OLANZAPINE [Suspect]
     Dosage: 5 MG, DAILY (1/D)
     Route: 048
     Dates: start: 20060721, end: 20060726
  3. RISPERDAL                               /SWE/ [Concomitant]
     Indication: SCHIZOPHRENIA, PARANOID TYPE
     Dosage: 6 MG, DAILY (1/D)
     Route: 048
     Dates: start: 20060509, end: 20060723
  4. BIPERIDEN HYDROCHLORIDE TAB [Concomitant]
     Indication: EXTRAPYRAMIDAL DISORDER
     Dosage: 6 MG, DAILY (1/D)
     Route: 048
     Dates: start: 20060523, end: 20060723
  5. RIVOTRIL                                /NOR/ [Concomitant]
     Indication: EXTRAPYRAMIDAL DISORDER
     Dosage: 1 MG, DAILY (1/D)
     Route: 048
     Dates: start: 20060703
  6. BESACOLIN [Concomitant]
     Indication: CONSTIPATION
     Dosage: 30 MG, DAILY (1/D)
     Route: 048
     Dates: start: 20060710
  7. MAGNESIUM OXIDE [Concomitant]
     Indication: CONSTIPATION
     Dosage: 1.5 G, DAILY (1/D)
     Route: 048
     Dates: start: 20060523

REACTIONS (2)
  - CONDITION AGGRAVATED [None]
  - MEIGE'S SYNDROME [None]
